FAERS Safety Report 12582346 (Version 2)
Quarter: 2016Q3

REPORT INFORMATION
  Report Type: Spontaneous
  Country: US (occurrence: US)
  Receive Date: 20160722
  Receipt Date: 20160728
  Transmission Date: 20161109
  Serious: No
  Sender: FDA-Public Use
  Company Number: US-BAYER-2016-137145

PATIENT
  Sex: Female

DRUGS (18)
  1. HYDROXYZINE HCL [Concomitant]
     Active Substance: HYDROXYZINE HYDROCHLORIDE
     Dosage: 50 MG, UNK
     Route: 048
  2. LEVOTHYROXIN [Concomitant]
     Active Substance: LEVOTHYROXINE
     Dosage: 1000 MG, QD
     Route: 048
  3. METOPROLOL. [Concomitant]
     Active Substance: METOPROLOL
     Dosage: 25 MG, QD
     Route: 048
  4. LYRICA [Concomitant]
     Active Substance: PREGABALIN
     Indication: ABDOMINAL PAIN
     Dosage: 75 MG, QD
     Route: 048
  5. SKELAXIN [Concomitant]
     Active Substance: METAXALONE
  6. WARFARIN SODIUM. [Concomitant]
     Active Substance: WARFARIN SODIUM
     Dosage: WED AND FN AND 2.5MG ALL OTHER DAYS
  7. OMEPRAZOLE. [Concomitant]
     Active Substance: OMEPRAZOLE
     Dosage: 20 MG, QD
  8. OLANZAPINE. [Concomitant]
     Active Substance: OLANZAPINE
     Dosage: 2.5 MG, QD
  9. LIPITOR [Concomitant]
     Active Substance: ATORVASTATIN CALCIUM
  10. XANAX [Concomitant]
     Active Substance: ALPRAZOLAM
  11. FLUTICASONE PROPIONATE. [Concomitant]
     Active Substance: FLUTICASONE PROPIONATE
     Dosage: USE 1-2
     Route: 045
  12. MELATONIN [Concomitant]
     Active Substance: MELATONIN
     Dosage: 5 MG, PRN
     Route: 048
  13. MIRTAZAPINE. [Concomitant]
     Active Substance: MIRTAZAPINE
     Dosage: 15 MG, UNK
  14. CLARITIN [Suspect]
     Active Substance: LORATADINE
  15. ZOLOFT [Concomitant]
     Active Substance: SERTRALINE HYDROCHLORIDE
     Indication: GLOSSITIS
  16. PRISTIQ EXTENDED-RELEASE [Concomitant]
     Active Substance: DESVENLAFAXINE SUCCINATE
  17. FISH OIL [Concomitant]
     Active Substance: FISH OIL
     Dosage: 1000 MG, QD
     Route: 048
  18. MIACALCIC [Concomitant]
     Active Substance: CALCITONIN SALMON
     Dosage: 200 IU, UNK
     Route: 045

REACTIONS (2)
  - Drug hypersensitivity [None]
  - Headache [None]
